FAERS Safety Report 8855379 (Version 1)
Quarter: 2012Q4

REPORT INFORMATION
  Report Type: 
  Country: US (occurrence: US)
  Receive Date: 20121023
  Receipt Date: 20121023
  Transmission Date: 20130627
  Serious: Yes (Hospitalization)
  Sender: FDA-Public Use
  Company Number: US-AMGEN-USASP2012051562

PATIENT
  Sex: Female

DRUGS (8)
  1. ENBREL [Suspect]
     Indication: PRODUCT USED FOR UNKNOWN INDICATION
     Dosage: 50 mg/ml, qwk
     Route: 058
  2. CENTRUM /02217401/ [Concomitant]
     Dosage: UNK
  3. XALATAN [Concomitant]
     Dosage: 0.005 %, UNK
  4. PREDNISONE [Concomitant]
     Dosage: 5 mg, UNK
  5. LORAZEPAM [Concomitant]
     Dosage: 0.5 mg, UNK
  6. NEXIUM                             /01479302/ [Concomitant]
     Dosage: 40 mg, UNK
     Route: 041
  7. VITAMIN B-12 [Concomitant]
     Dosage: 1000 mug, UNK
  8. VITAMIN B COMPLEX [Concomitant]
     Dosage: UNK

REACTIONS (3)
  - Post procedural infection [Recovered/Resolved]
  - Impaired healing [Unknown]
  - Cyst [Unknown]
